FAERS Safety Report 8535915-6 (Version None)
Quarter: 2012Q3

REPORT INFORMATION
  Report Type: 
  Country: None (occurrence: None)
  Receive Date: 20120725
  Receipt Date: 20120718
  Transmission Date: 20120928
  Serious: Yes (Hospitalization, Other)
  Sender: FDA-Public Use
  Company Number: PHEH2012US014246

PATIENT
  Sex: Female
  Weight: 62.132 kg

DRUGS (2)
  1. VIVELLE-DOT [Suspect]
     Indication: PRESYNCOPE
     Dosage: 0.025 UKN, QW2
     Route: 062
     Dates: start: 20030101, end: 20120614
  2. PROMETRIUM [Concomitant]

REACTIONS (3)
  - WRONG TECHNIQUE IN DRUG USAGE PROCESS [None]
  - ENDOMETRIAL CANCER STAGE III [None]
  - ENDOMETRIAL HYPERTROPHY [None]
